FAERS Safety Report 8085851-7 (Version None)
Quarter: 2012Q1

REPORT INFORMATION
  Report Type: 
  Country: None (occurrence: None)
  Receive Date: 20120128
  Receipt Date: 20110413
  Transmission Date: 20120608
  Serious: No
  Sender: FDA-Public Use
  Company Number: US-ABBOTT-11P-163-0720221-00

PATIENT
  Sex: Female
  Weight: 86.26 kg

DRUGS (3)
  1. HUMIRA [Suspect]
     Indication: PSORIASIS
     Dosage: TAKING MEDICATION
     Route: 058
     Dates: start: 20110101, end: 20110301
  2. HUMIRA [Suspect]
     Route: 058
     Dates: start: 20110301
  3. CYMBALTA [Concomitant]
     Indication: DEPRESSION
     Route: 048

REACTIONS (4)
  - PSORIASIS [None]
  - ARTHRALGIA [None]
  - OVERDOSE [None]
  - ABASIA [None]
